FAERS Safety Report 12610632 (Version 1)
Quarter: 2016Q3

REPORT INFORMATION
  Report Type: Spontaneous
  Country: US (occurrence: US)
  Receive Date: 20160801
  Receipt Date: 20160801
  Transmission Date: 20161109
  Serious: No
  Sender: FDA-Public Use
  Company Number: US-BAUSCH-BL-2016-010218

PATIENT
  Age: 67 Year
  Sex: Female
  Weight: 76.27 kg

DRUGS (1)
  1. UCERIS [Suspect]
     Active Substance: BUDESONIDE
     Indication: COLITIS ULCERATIVE
     Dosage: NIGHTLY/EVENING
     Route: 054
     Dates: start: 20160411

REACTIONS (2)
  - Drug administration error [Unknown]
  - No adverse event [Unknown]

NARRATIVE: CASE EVENT DATE: 20160428
